FAERS Safety Report 6673339-7 (Version None)
Quarter: 2010Q2

REPORT INFORMATION
  Report Type: 
  Country: None (occurrence: None)
  Receive Date: 20100408
  Receipt Date: 20100330
  Transmission Date: 20101027
  Serious: Yes (Hospitalization)
  Sender: FDA-Public Use
  Company Number: GB-WATSON-2010-04567

PATIENT

DRUGS (6)
  1. OMEPRAZOLE (WATSON LABORATORIES) [Suspect]
     Indication: DRUG USE FOR UNKNOWN INDICATION
     Dosage: UNK
     Route: 048
     Dates: start: 19990101
  2. ESOMEPRAZOLE [Suspect]
     Indication: DRUG USE FOR UNKNOWN INDICATION
     Dosage: UNK
  3. PANTOPRAZOLE [Suspect]
     Indication: DRUG USE FOR UNKNOWN INDICATION
  4. ALFACALCIDOL [Concomitant]
     Indication: DRUG USE FOR UNKNOWN INDICATION
     Dosage: 250 MG, DAILY
  5. CALCICHEW D3 [Concomitant]
     Indication: DRUG USE FOR UNKNOWN INDICATION
     Dosage: UNK
     Route: 048
  6. FUROSEMIDE [Concomitant]
     Indication: DRUG USE FOR UNKNOWN INDICATION
     Dosage: 20 MG, DAILY
     Route: 065

REACTIONS (8)
  - CIRCULATORY COLLAPSE [None]
  - GAIT DISTURBANCE [None]
  - HYPOCALCAEMIA [None]
  - HYPOMAGNESAEMIA [None]
  - LETHARGY [None]
  - MUSCLE SPASMS [None]
  - PARAESTHESIA [None]
  - TETANY [None]
